FAERS Safety Report 26184690 (Version 1)
Quarter: 2025Q4

REPORT INFORMATION
  Report Type: Spontaneous
  Country: US (occurrence: US)
  Receive Date: 20251222
  Receipt Date: 20251222
  Transmission Date: 20260117
  Serious: Yes (Death, Other)
  Sender: JOHNSON AND JOHNSON
  Company Number: US-BAYER-2025A165952

PATIENT
  Age: 69 Year
  Sex: Male

DRUGS (2)
  1. XARELTO [Suspect]
     Active Substance: RIVAROXABAN
     Indication: Portal vein thrombosis
  2. CORTICOSTEROID NOS [Concomitant]
     Active Substance: CORTICOSTEROID NOS
     Indication: Product used for unknown indication

REACTIONS (6)
  - Acute respiratory failure [Fatal]
  - Pulmonary alveolar haemorrhage [Fatal]
  - Haemodynamic instability [Unknown]
  - Anaemia [Unknown]
  - Product use in unapproved indication [Unknown]
  - Product prescribing issue [Unknown]
